FAERS Safety Report 4680725-3 (Version None)
Quarter: 2005Q2

REPORT INFORMATION
  Report Type: 
  Country: None (occurrence: None)
  Receive Date: 20050601
  Receipt Date: 20050519
  Transmission Date: 20051028
  Serious: Yes (Other)
  Sender: FDA-Public Use
  Company Number: 2005061369

PATIENT
  Sex: Female

DRUGS (2)
  1. BEXTRA [Suspect]
     Indication: SINUSITIS
     Dosage: 40 MG (40 MG, SINGLE INTERVAL:  EVERYDAY), ORAL
     Route: 048
     Dates: start: 20050101, end: 20050101
  2. ACETYLCYSTEINE [Concomitant]

REACTIONS (1)
  - HYPERSENSITIVITY [None]
